FAERS Safety Report 6004669-X (Version None)
Quarter: 2008Q4

REPORT INFORMATION
  Report Type: 
  Country: None (occurrence: None)
  Receive Date: 20081216
  Receipt Date: 20081203
  Transmission Date: 20090506
  Serious: Yes (Death, Hospitalization)
  Sender: FDA-Public Use
  Company Number: HK-SANOFI-SYNTHELABO-F01200801890

PATIENT
  Sex: Male

DRUGS (7)
  1. NAPROXEN [Concomitant]
  2. PEPCIDINE [Concomitant]
  3. ATENOLOL [Concomitant]
     Dosage: 100 MG
  4. ALLOPURINOL [Concomitant]
     Dosage: 200 MG
  5. CAPECITABINE [Suspect]
     Dosage: DAYS 2-15
     Route: 048
     Dates: start: 20081121, end: 20081128
  6. ERLOTINIB [Suspect]
     Dosage: 150 MG ALTERNATING DAYS FROM 2-14, THEN DAILY FROM DAYS 5-21 WITH XELOX REGIMEN 25 MG
     Route: 048
     Dates: start: 20081121, end: 20081128
  7. OXALIPLATIN [Suspect]
     Indication: COLORECTAL CANCER METASTATIC
     Dosage: 240 MG
     Route: 041
     Dates: start: 20081120, end: 20081120

REACTIONS (4)
  - ABDOMINAL SEPSIS [None]
  - DIARRHOEA [None]
  - INTESTINAL OBSTRUCTION [None]
  - INTESTINAL PERFORATION [None]
